FAERS Safety Report 16492711 (Version 3)
Quarter: 2019Q4

REPORT INFORMATION
  Report Type: Report from Study
  Country: IT (occurrence: IT)
  Receive Date: 20190628
  Receipt Date: 20191211
  Transmission Date: 20200122
  Serious: Yes (Other)
  Sender: FDA-Public Use
  Company Number: PHHY2019IT126866

PATIENT
  Age: 30 Year
  Sex: Female

DRUGS (2)
  1. COSENTYX [Suspect]
     Active Substance: SECUKINUMAB
     Dosage: 300 MG, EVERY 28 DAYS (BATCH NUMBER OF COSENTYX WAS UNKNOWN)
     Route: 065
  2. COSENTYX [Suspect]
     Active Substance: SECUKINUMAB
     Indication: PRODUCT USED FOR UNKNOWN INDICATION
     Dosage: 300 MG, QW (BATCH NUMBER OF COSENTYX WAS UNKNOWN)
     Route: 065
     Dates: start: 20190523

REACTIONS (10)
  - Limb discomfort [Unknown]
  - Oral mucosal exfoliation [Unknown]
  - Tonsillar hypertrophy [Unknown]
  - Injection site paraesthesia [Not Recovered/Not Resolved]
  - Oral discomfort [Unknown]
  - Skin fissures [Unknown]
  - Pain in extremity [Unknown]
  - Anaphylactic shock [Unknown]
  - Nail disorder [Not Recovered/Not Resolved]
  - Dyspnoea [Unknown]

NARRATIVE: CASE EVENT DATE: 20190618
